FAERS Safety Report 4399390-8 (Version None)
Quarter: 2004Q2

REPORT INFORMATION
  Report Type: 
  Country: None (occurrence: None)
  Receive Date: 20040607
  Receipt Date: 20040226
  Transmission Date: 20050107
  Serious: No
  Sender: FDA-Public Use
  Company Number: US-SHR-03-011056

PATIENT
  Age: 66 Year
  Sex: Female

DRUGS (14)
  1. CAMPATH [Suspect]
     Indication: CHRONIC LYMPHOCYTIC LEUKAEMIA
     Dosage: 3/10 MG;30 MG 3X WEEKLY; 3/10 MG; 30 MG 3X WEEKLY; 10 MG; 30 MG 3 WEEKLY
     Dates: start: 20030507, end: 20030501
  2. CAMPATH [Suspect]
     Indication: CHRONIC LYMPHOCYTIC LEUKAEMIA
     Dosage: 3/10 MG;30 MG 3X WEEKLY; 3/10 MG; 30 MG 3X WEEKLY; 10 MG; 30 MG 3 WEEKLY
     Dates: start: 20030505, end: 20030506
  3. CAMPATH [Suspect]
     Indication: CHRONIC LYMPHOCYTIC LEUKAEMIA
     Dosage: 3/10 MG;30 MG 3X WEEKLY; 3/10 MG; 30 MG 3X WEEKLY; 10 MG; 30 MG 3 WEEKLY
     Dates: start: 20030527, end: 20030528
  4. CAMPATH [Suspect]
     Indication: CHRONIC LYMPHOCYTIC LEUKAEMIA
     Dosage: 3/10 MG;30 MG 3X WEEKLY; 3/10 MG; 30 MG 3X WEEKLY; 10 MG; 30 MG 3 WEEKLY
     Dates: start: 20030529, end: 20030704
  5. CAMPATH [Suspect]
     Indication: CHRONIC LYMPHOCYTIC LEUKAEMIA
     Dosage: 3/10 MG;30 MG 3X WEEKLY; 3/10 MG; 30 MG 3X WEEKLY; 10 MG; 30 MG 3 WEEKLY
     Dates: start: 20030707, end: 20030709
  6. CAMPATH [Suspect]
     Indication: CHRONIC LYMPHOCYTIC LEUKAEMIA
     Dosage: 3/10 MG;30 MG 3X WEEKLY; 3/10 MG; 30 MG 3X WEEKLY; 10 MG; 30 MG 3 WEEKLY
     Dates: start: 20030714, end: 20030727
  7. TYLENOL /USA/ 05/05/2003 [Concomitant]
  8. DIPHENHYDRAMINE (BENADRYL) (DIPHENHYDRAMINE) [Concomitant]
  9. PREDNISONE [Concomitant]
  10. CIMETIDINE [Concomitant]
  11. AMOXICILLIN (AMOXICILLIN TRIHYDRATE, CLAVULANATE POTASSIUM) [Concomitant]
  12. DIFLUCAN [Concomitant]
  13. ACYCLOVIR [Concomitant]
  14. PENTAMIDINE (PENTAMIDINE) [Concomitant]

REACTIONS (1)
  - HYPERSENSITIVITY [None]
